FAERS Safety Report 10128684 (Version 1)
Quarter: 2014Q2

REPORT INFORMATION
  Report Type: Spontaneous
  Country: CA (occurrence: CA)
  Receive Date: 20140428
  Receipt Date: 20140428
  Transmission Date: 20141212
  Serious: Yes (Other)
  Sender: FDA-Public Use
  Company Number: CA-VERTEX PHARMACEUTICALS INC-2014-002049

PATIENT
  Age: 53 Year
  Sex: Male

DRUGS (11)
  1. INCIVEK [Suspect]
     Indication: HEPATITIS C
     Dosage: UNK
     Route: 065
  2. RIBAVIRIN [Suspect]
     Indication: HEPATITIS C
     Dosage: 1200 MG, UNK
     Route: 065
  3. RIBAVIRIN [Suspect]
     Dosage: 800 MG, UNK
     Route: 065
  4. PEGASYS [Suspect]
     Indication: HEPATITIS C
     Dosage: 180 ?G, UNK
     Route: 065
  5. PEGASYS [Suspect]
     Dosage: 90 ?G, UNK
     Route: 065
  6. PEGASYS [Suspect]
     Dosage: 90 ?G, UNK
     Route: 065
  7. PEGASYS [Suspect]
     Dosage: 135 ?G, UNK
     Route: 065
  8. 5 ASA [Suspect]
  9. NAPROXEN [Concomitant]
     Route: 065
  10. HYDROCHLOROTHIAZIDE [Concomitant]
  11. GABAPENTIN [Concomitant]

REACTIONS (6)
  - Colitis ischaemic [Unknown]
  - Dehydration [Unknown]
  - Depression [Unknown]
  - Diarrhoea [Unknown]
  - Rash [Unknown]
  - Blood creatinine increased [Unknown]
